FAERS Safety Report 13053880 (Version 1)
Quarter: 2016Q4

REPORT INFORMATION
  Report Type: Spontaneous
  Country: HR (occurrence: HR)
  Receive Date: 20161222
  Receipt Date: 20161222
  Transmission Date: 20170207
  Serious: Yes (Hospitalization, Other)
  Sender: FDA-Public Use
  Company Number: HR-TEVA-720594ACC

PATIENT
  Age: 50 Year
  Sex: Female

DRUGS (1)
  1. AVOMIT (LETROZOLE) [Suspect]
     Active Substance: LETROZOLE
     Dosage: 5 TABLETS
     Route: 048
     Dates: start: 20160914

REACTIONS (3)
  - Intentional overdose [Unknown]
  - Somnolence [Unknown]
  - Suicide attempt [Unknown]

NARRATIVE: CASE EVENT DATE: 20160914
